FAERS Safety Report 9403974 (Version 1)
Quarter: 2013Q3

REPORT INFORMATION
  Report Type: Spontaneous
  Country: US (occurrence: US)
  Receive Date: 20130717
  Receipt Date: 20130717
  Transmission Date: 20140515
  Serious: No
  Sender: FDA-Public Use
  Company Number: US-BIOGENIDEC-2013BI064624

PATIENT
  Age: 52 Year
  Sex: Female

DRUGS (2)
  1. TYSABRI [Suspect]
     Indication: MULTIPLE SCLEROSIS
     Route: 042
     Dates: start: 20110715
  2. AVONEX [Concomitant]
     Indication: MULTIPLE SCLEROSIS
     Route: 030
     Dates: start: 20081120

REACTIONS (5)
  - Pain in extremity [Not Recovered/Not Resolved]
  - Hypersomnia [Recovered/Resolved with Sequelae]
  - Crying [Not Recovered/Not Resolved]
  - Hypoaesthesia [Recovered/Resolved]
  - Loss of control of legs [Recovered/Resolved]
